FAERS Safety Report 5122350-6 (Version None)
Quarter: 2006Q4

REPORT INFORMATION
  Report Type: 
  Country: None (occurrence: None)
  Receive Date: 20061004
  Receipt Date: 20060914
  Transmission Date: 20070319
  Serious: Yes (Other)
  Sender: FDA-Public Use
  Company Number: US200608004713

PATIENT
  Age: 64 Year
  Sex: Female

DRUGS (7)
  1. CYMBALTA [Suspect]
     Indication: NEUROPATHY
     Dosage: SEE IMAGE
     Dates: start: 20050301
  2. MS CONTIN [Concomitant]
  3. SYNTHROID [Concomitant]
  4. HORMONES AND RELATED AGENTS [Concomitant]
  5. ALLOPURINOL [Concomitant]
  6. ZOFRAN [Concomitant]
  7. NEXIUM  /UNK/(ESOMEPRAZOLE) [Concomitant]

REACTIONS (4)
  - CONFUSIONAL STATE [None]
  - RENAL FAILURE [None]
  - SOMNOLENCE [None]
  - WEIGHT DECREASED [None]
